FAERS Safety Report 7902834-5 (Version None)
Quarter: 2011Q4

REPORT INFORMATION
  Report Type: 
  Country: None (occurrence: None)
  Receive Date: 20111109
  Receipt Date: 20111104
  Transmission Date: 20120403
  Serious: Yes (Other)
  Sender: FDA-Public Use
  Company Number: US-SP-2011-03808

PATIENT
  Sex: Female

DRUGS (2)
  1. VARICELLA [Suspect]
     Indication: IMMUNISATION
     Route: 065
     Dates: start: 20090626, end: 20090626
  2. TUBERSOL [Suspect]
     Indication: TUBERCULIN TEST
     Route: 023
     Dates: start: 20090626, end: 20090626

REACTIONS (9)
  - DIZZINESS [None]
  - NAUSEA [None]
  - TONIC CONVULSION [None]
  - PALLOR [None]
  - DEHYDRATION [None]
  - MALAISE [None]
  - PRESYNCOPE [None]
  - BRADYCARDIA [None]
  - HYPERHIDROSIS [None]
